FAERS Safety Report 7903224-1 (Version None)
Quarter: 2011Q4

REPORT INFORMATION
  Report Type: 
  Country: None (occurrence: None)
  Receive Date: 20111107
  Receipt Date: 20111025
  Transmission Date: 20120403
  Serious: Yes (Hospitalization)
  Sender: FDA-Public Use
  Company Number: 1000024747

PATIENT
  Age: 19 Year
  Sex: Male

DRUGS (6)
  1. OLANZAPINE [Concomitant]
  2. LITHIUM CARBONATE [Concomitant]
  3. LORAZEPAM [Concomitant]
  4. ESCITALOPRAM OXALATE [Suspect]
  5. BIPERIDENE (BIPERIDEN) [Concomitant]
  6. RISPERIDONE [Concomitant]

REACTIONS (2)
  - NEUROLEPTIC MALIGNANT SYNDROME [None]
  - PNEUMOTHORAX [None]
